FAERS Safety Report 20296512 (Version 1)
Quarter: 2022Q1

REPORT INFORMATION
  Report Type: Spontaneous
  Country: US (occurrence: US)
  Receive Date: 20220105
  Receipt Date: 20220105
  Transmission Date: 20220424
  Serious: No
  Sender: FDA-Public Use
  Company Number: US-COOPERSURGICAL, INC.-US-2021CPS003575

PATIENT
  Age: 48 Year
  Sex: Female
  Weight: 71.655 kg

DRUGS (12)
  1. PARAGARD T 380A [Suspect]
     Active Substance: COPPER
     Indication: Contraception
     Dosage: UNK
     Route: 015
     Dates: start: 20210915
  2. TYLENOL                            /00020001/ [Concomitant]
     Indication: Product used for unknown indication
     Route: 065
  3. PROAIR                             /00139502/ [Concomitant]
     Indication: Product used for unknown indication
     Dosage: 90 MICROGRAM, PRN
     Route: 065
  4. ASPIRIN                            /00002701/ [Concomitant]
     Indication: Product used for unknown indication
     Dosage: 325 MG, BID
     Route: 048
  5. FLEXERIL                           /00428402/ [Concomitant]
     Indication: Product used for unknown indication
     Dosage: 5 MG, BID
     Route: 048
  6. LEXAPRO [Concomitant]
     Active Substance: ESCITALOPRAM OXALATE
     Indication: Product used for unknown indication
     Dosage: 20 MG, QD
     Route: 048
  7. FLONASE                            /00908302/ [Concomitant]
     Indication: Product used for unknown indication
     Dosage: 50 MICROGRAM, BID
     Route: 045
  8. CLARITIN                           /00413701/ [Concomitant]
     Indication: Product used for unknown indication
     Dosage: 10 MG, QD
     Route: 048
  9. TRAMADOL [Concomitant]
     Active Substance: TRAMADOL
     Indication: Product used for unknown indication
     Dosage: 50 MG, PRN
     Route: 048
  10. RETINOL ACETAS [Concomitant]
     Indication: Product used for unknown indication
     Route: 061
  11. CELACYN [Concomitant]
     Indication: Product used for unknown indication
     Route: 061
  12. ACETAMINOPHEN [Concomitant]
     Active Substance: ACETAMINOPHEN
     Indication: Product used for unknown indication
     Dosage: 500 MG, PRN
     Route: 048

REACTIONS (2)
  - Off label use [Unknown]
  - Post procedural haemorrhage [Recovered/Resolved]

NARRATIVE: CASE EVENT DATE: 20210915
